FAERS Safety Report 21134137 (Version 3)
Quarter: 2022Q3

REPORT INFORMATION
  Report Type: Spontaneous
  Country: US (occurrence: US)
  Receive Date: 20220726
  Receipt Date: 20220912
  Transmission Date: 20221026
  Serious: Yes (Other)
  Sender: FDA-Public Use
  Company Number: US-PFIZER INC-202200992521

PATIENT
  Age: 15 Year
  Sex: Female

DRUGS (17)
  1. VINCRISTINE SULFATE [Suspect]
     Active Substance: VINCRISTINE SULFATE
     Indication: B-cell type acute leukaemia
     Dosage: INDUCTION THERAPY
     Route: 042
     Dates: start: 201112, end: 201201
  2. VINCRISTINE SULFATE [Suspect]
     Active Substance: VINCRISTINE SULFATE
     Dosage: CONSOLIDATION THERAPY
     Route: 042
     Dates: start: 201204
  3. VINCRISTINE SULFATE [Suspect]
     Active Substance: VINCRISTINE SULFATE
     Dosage: MAINTENANCE THERAPY
     Route: 042
     Dates: start: 201211, end: 201404
  4. CYTARABINE [Suspect]
     Active Substance: CYTARABINE
     Indication: B-cell type acute leukaemia
     Dosage: INDUCTION THERAPY
     Route: 037
     Dates: start: 201112, end: 201201
  5. CYTARABINE [Suspect]
     Active Substance: CYTARABINE
     Dosage: CONSOLIDATION THERAPY
     Dates: start: 201204
  6. CYTARABINE [Suspect]
     Active Substance: CYTARABINE
     Dosage: MAINTENANCE THERAPY
     Dates: start: 2012, end: 2014
  7. CYTARABINE [Suspect]
     Active Substance: CYTARABINE
     Dosage: MAINTENANCE THERAPY
     Route: 042
     Dates: start: 202001, end: 202002
  8. METHOTREXATE SODIUM [Suspect]
     Active Substance: METHOTREXATE SODIUM
     Indication: B-cell type acute leukaemia
     Dosage: INDUCTION THERAPY
     Route: 037
     Dates: start: 201112
  9. METHOTREXATE SODIUM [Suspect]
     Active Substance: METHOTREXATE SODIUM
     Dosage: CONSOLIDATION THERAPY
     Route: 037
     Dates: start: 201207
  10. METHOTREXATE SODIUM [Suspect]
     Active Substance: METHOTREXATE SODIUM
     Dosage: MAINTENANCE THERAPY
     Route: 037
     Dates: start: 201211, end: 201404
  11. METHOTREXATE SODIUM [Suspect]
     Active Substance: METHOTREXATE SODIUM
     Dosage: MAINTENANCE THERAPY
     Route: 037
     Dates: start: 202001, end: 202002
  12. PEG/L-ASPARAGINASE [Suspect]
     Active Substance: PEGASPARGASE
     Indication: B-cell type acute leukaemia
     Dosage: INDUCTION THERAPY
     Route: 030
     Dates: start: 201112
  13. PEG/L-ASPARAGINASE [Suspect]
     Active Substance: PEGASPARGASE
     Dosage: CONSOLIDATION THERAPY
     Route: 030
     Dates: start: 201204
  14. DAUNORUBICIN [Suspect]
     Active Substance: DAUNORUBICIN
     Indication: B-cell type acute leukaemia
     Dosage: UNK
     Route: 042
     Dates: start: 201112
  15. CYCLOPHOSPHAMIDE [Concomitant]
     Active Substance: CYCLOPHOSPHAMIDE
     Indication: Acute lymphocytic leukaemia
     Dosage: UNK
     Route: 042
     Dates: start: 201204
  16. MERCAPTOPURINE [Concomitant]
     Active Substance: MERCAPTOPURINE
     Indication: Acute lymphocytic leukaemia
     Dosage: UNK
     Route: 048
     Dates: start: 201204
  17. THIOGUANINE [Concomitant]
     Active Substance: THIOGUANINE
     Dosage: UNK(MAINTENANCE THERAPY)
     Dates: start: 2012, end: 2014

REACTIONS (1)
  - Amenorrhoea [Recovered/Resolved]
